FAERS Safety Report 24716050 (Version 2)
Quarter: 2024Q4

REPORT INFORMATION
  Report Type: Spontaneous
  Country: FR (occurrence: FR)
  Receive Date: 20241210
  Receipt Date: 20241213
  Transmission Date: 20250115
  Serious: Yes (Hospitalization, Other)
  Sender: AUROBINDO
  Company Number: FR-ROCHE-10000135007

PATIENT
  Age: 41 Year
  Sex: Female
  Weight: 92 kg

DRUGS (9)
  1. CAPECITABINE [Suspect]
     Active Substance: CAPECITABINE
     Indication: Triple negative breast cancer
     Dosage: UNK
     Route: 065
     Dates: start: 20241104
  2. PACLITAXEL [Suspect]
     Active Substance: PACLITAXEL
     Indication: Triple negative breast cancer
     Dosage: UNK [ON 20/JUN/2024, SHE HAD LAST DOSE ADMINISTERED BEFORE SAE WAS 200 MG.CUMULATIVE DOSE SINCE 1ST
     Route: 065
     Dates: start: 20240402
  3. CARBOPLATIN [Suspect]
     Active Substance: CARBOPLATIN
     Indication: Triple negative breast cancer
     Dosage: UNK [ON 06/JUN/2024, SHE HAD LAST DOSE ADMINISTERED PRIOR TO SAE WAS 660 MG.CUMULATIVE FREQUENCY SIN
     Route: 065
     Dates: start: 20240402
  4. DOXORUBICIN [Suspect]
     Active Substance: DOXORUBICIN
     Indication: Triple negative breast cancer
     Dosage: UNK [ON 03/SEP/2024, SHE HAD LAST DOSE ADMINISTERED AS 60 MG.CUMULATIVE DOSE SINCE THE 1ST ADMINISTE
     Route: 065
     Dates: start: 20240627
  5. CYCLOPHOSPHAMIDE [Suspect]
     Active Substance: CYCLOPHOSPHAMIDE
     Indication: Triple negative breast cancer
     Dosage: UNK [ON 03/SEP/2024, SHE HAD LAST DOSE PRIOR TO SAE WAS 1000 MG.CUMULATIVE DOSE SINCE 1ST ADMINISTER
     Route: 065
     Dates: start: 20240606
  6. ATEZOLIZUMAB [Suspect]
     Active Substance: ATEZOLIZUMAB
     Indication: Triple negative breast cancer
     Dosage: UNK [ON 23/OCT/2024 SHE RECEIVED LAST DOSE OF ATEZOLIZUMAB PRIOR TO EVENT.]
     Route: 042
     Dates: start: 20240402
  7. TIRAGOLUMAB [Suspect]
     Active Substance: TIRAGOLUMAB
     Indication: Triple negative breast cancer
     Dosage: UNK [ON 23/OCT/2024 SHE RECEIVED LAST DOSE OF TIRAGOLUMAB PRIOR TO EVENT.]
     Route: 042
     Dates: start: 20240402
  8. NEURONTIN [Concomitant]
     Active Substance: GABAPENTIN
     Indication: Product used for unknown indication
     Dosage: UNK
     Route: 065
     Dates: start: 20241023
  9. PAROXETINE [Concomitant]
     Active Substance: PAROXETINE
     Indication: Product used for unknown indication
     Dosage: UNK
     Route: 065
     Dates: start: 20241023

REACTIONS (2)
  - Myocarditis [Not Recovered/Not Resolved]
  - Cardiac disorder [Not Recovered/Not Resolved]

NARRATIVE: CASE EVENT DATE: 20241113
